FAERS Safety Report 8461312-8 (Version None)
Quarter: 2012Q2

REPORT INFORMATION
  Report Type: 
  Country: None (occurrence: None)
  Receive Date: 20120323
  Receipt Date: 20110912
  Transmission Date: 20120825
  Serious: Yes (Other)
  Sender: FDA-Public Use
  Company Number: 163-21880-11091531

PATIENT
  Age: 82 Year
  Sex: Female

DRUGS (1)
  1. REVLIMID [Suspect]
     Indication: MULTIPLE MYELOMA
     Dosage: 15 MG , EVERY DAY ON DAY 1 THRU 21 ; 15 MG EVERY DAY ON DAY 1 THRU 21 EVERY 28 DAYS, PO
     Route: 048
     Dates: start: 20110727

REACTIONS (1)
  - THROMBOSIS [None]
